FAERS Safety Report 9838426 (Version 1)
Quarter: 2013Q4

REPORT INFORMATION
  Report Type: Spontaneous
  Country: US (occurrence: None)
  Receive Date: 20131206
  Receipt Date: 20131206
  Transmission Date: 20140711
  Serious: Yes (Other)
  Sender: FDA-Public Use
  Company Number: 374094

PATIENT
  Sex: Male

DRUGS (4)
  1. NOVOLOG [Suspect]
     Dosage: SLIDING SCALE
     Route: 058
  2. LANTUS (INSULIN GLARGINE) [Concomitant]
  3. ACTOS (PIOGLITAZONE HYDROCHLORIDE) [Concomitant]
  4. SIMVASTATIN (SIMAVASTATIN) [Concomitant]

REACTIONS (2)
  - Hypoglycaemia [None]
  - Loss of consciousness [None]
